FAERS Safety Report 25791456 (Version 6)
Quarter: 2025Q4

REPORT INFORMATION
  Report Type: Report from Study
  Country: US (occurrence: US)
  Receive Date: 20250911
  Receipt Date: 20251126
  Transmission Date: 20260118
  Serious: Yes (Other)
  Sender: ACADIA PHARMACEUTICALS
  Company Number: US-ACADIA PHARMACEUTICALS INC.-ACA-2025-PIM-010026

PATIENT
  Sex: Female

DRUGS (1)
  1. NUPLAZID [Suspect]
     Active Substance: PIMAVANSERIN TARTRATE
     Indication: Parkinson^s disease psychosis
     Dosage: 34 MILLIGRAM, QD
     Route: 048

REACTIONS (10)
  - Hallucination [Recovering/Resolving]
  - Hallucination, visual [Unknown]
  - Hypersomnia [Not Recovered/Not Resolved]
  - Infection [Not Recovered/Not Resolved]
  - Dysgraphia [Unknown]
  - Defiant behaviour [Unknown]
  - Delusion [Unknown]
  - Malaise [Unknown]
  - Treatment noncompliance [Not Recovered/Not Resolved]
  - Product dose omission issue [Unknown]
